FAERS Safety Report 22601158 (Version 2)
Quarter: 2023Q2

REPORT INFORMATION
  Report Type: Spontaneous
  Country: US (occurrence: US)
  Receive Date: 20230614
  Receipt Date: 20230623
  Transmission Date: 20230721
  Serious: No
  Sender: FDA-Public Use
  Company Number: US-PFIZER INC-PV202300103567

PATIENT
  Age: 71 Year
  Sex: Female
  Weight: 69.841 kg

DRUGS (1)
  1. IBRANCE [Suspect]
     Active Substance: PALBOCICLIB
     Indication: Breast cancer metastatic
     Dosage: TAKE 1 TABLET DAILY FOR 21 DAYS ON AND THEN 7 DAYS OFF
     Route: 048

REACTIONS (5)
  - Mean cell volume increased [Unknown]
  - Red cell distribution width increased [Unknown]
  - Lymphocyte percentage increased [Unknown]
  - Blood creatinine increased [Unknown]
  - Glomerular filtration rate decreased [Unknown]

NARRATIVE: CASE EVENT DATE: 20230406
